FAERS Safety Report 6973690-7 (Version None)
Quarter: 2010Q3

REPORT INFORMATION
  Report Type: 
  Country: None (occurrence: None)
  Receive Date: 20100909
  Receipt Date: 20100826
  Transmission Date: 20110219
  Serious: Yes (Hospitalization)
  Sender: FDA-Public Use
  Company Number: US-ELI_LILLY_AND_COMPANY-US201002001304

PATIENT
  Sex: Female

DRUGS (1)
  1. FORTEO [Suspect]
     Indication: OSTEOPOROSIS
     Dosage: 20 UG, DAILY (1/D)
     Dates: start: 20090101, end: 20100825

REACTIONS (10)
  - DRY SKIN [None]
  - GAIT DISTURBANCE [None]
  - HYPERHIDROSIS [None]
  - NERVE COMPRESSION [None]
  - PRURITUS [None]
  - RASH GENERALISED [None]
  - RENAL DISORDER [None]
  - SKIN DISCOLOURATION [None]
  - SKIN HYPERTROPHY [None]
  - SPINAL DISORDER [None]
